FAERS Safety Report 14847434 (Version 1)
Quarter: 2018Q2

REPORT INFORMATION
  Report Type: Spontaneous
  Country: US (occurrence: US)
  Receive Date: 20180504
  Receipt Date: 20180504
  Transmission Date: 20180711
  Serious: Yes (Other)
  Sender: FDA-Public Use
  Company Number: US-PFIZER INC-2018180118

PATIENT
  Age: 70 Year
  Sex: Male

DRUGS (7)
  1. PREDNISONE. [Suspect]
     Active Substance: PREDNISONE
     Dosage: UNK
  2. DOXORUBICIN HCL [Suspect]
     Active Substance: DOXORUBICIN HYDROCHLORIDE
     Indication: B-CELL TYPE ACUTE LEUKAEMIA
     Dosage: UNK
  3. VINCRISTINE SULFATE. [Suspect]
     Active Substance: VINCRISTINE SULFATE
     Indication: B-CELL TYPE ACUTE LEUKAEMIA
     Dosage: UNK
  4. CYTARABINE. [Suspect]
     Active Substance: CYTARABINE
     Indication: B-CELL TYPE ACUTE LEUKAEMIA
     Dosage: UNK
  5. METHOTREXATE SODIUM. [Suspect]
     Active Substance: METHOTREXATE SODIUM
     Dosage: UNK
     Route: 037
     Dates: start: 20171221
  6. DASATINIB. [Suspect]
     Active Substance: DASATINIB
     Indication: B-CELL TYPE ACUTE LEUKAEMIA
     Dosage: UNK
  7. NILOTINIB [Suspect]
     Active Substance: NILOTINIB
     Dosage: 150 MG, UNK

REACTIONS (6)
  - Thrombocytopenia [Unknown]
  - Nausea [Unknown]
  - Subdural haematoma [Unknown]
  - Pancytopenia [Unknown]
  - Acute kidney injury [Unknown]
  - Vomiting [Unknown]
